FAERS Safety Report 17588411 (Version 1)
Quarter: 2020Q1

REPORT INFORMATION
  Report Type: Report from Study
  Country: DE (occurrence: DE)
  Receive Date: 20200326
  Receipt Date: 20200326
  Transmission Date: 20200409
  Serious: Yes (Hospitalization)
  Sender: FDA-Public Use
  Company Number: DE-SEATTLE GENETICS-2020SGN01616

PATIENT

DRUGS (6)
  1. CYCLOPHOSPHAMIDE. [Suspect]
     Active Substance: CYCLOPHOSPHAMIDE
     Indication: HODGKIN^S DISEASE
     Dosage: 1980 MILLIGRAM/SQ. METER
     Route: 065
     Dates: start: 20191108
  2. ETOPOSIDE. [Suspect]
     Active Substance: ETOPOSIDE
     Indication: HODGKIN^S DISEASE
     Dosage: 239 MILLIGRAM/SQ. METER
     Route: 065
     Dates: start: 20191108
  3. DEXAMETHASONE. [Suspect]
     Active Substance: DEXAMETHASONE
     Indication: HODGKIN^S DISEASE
     Dosage: 40 MILLIGRAM
     Route: 065
     Dates: start: 20191108
  4. DACARBAZINE. [Suspect]
     Active Substance: DACARBAZINE
     Indication: HODGKIN^S DISEASE
     Dosage: 397 MILLIGRAM/SQ. METER
     Route: 065
     Dates: start: 20191108
  5. DOXORUBICIN [Suspect]
     Active Substance: DOXORUBICIN
     Indication: HODGKIN^S DISEASE
     Dosage: 64 MILLIGRAM/KILOGRAM
     Route: 065
     Dates: start: 20191108
  6. BRENTUXIMAB VEDOTIN-MPI [Suspect]
     Active Substance: BRENTUXIMAB VEDOTIN
     Indication: HODGKIN^S DISEASE
     Dosage: 97 MG/M2, UNK
     Route: 065
     Dates: start: 20191107

REACTIONS (1)
  - Bradycardia [Not Recovered/Not Resolved]

NARRATIVE: CASE EVENT DATE: 20191110
